FAERS Safety Report 11746274 (Version 1)
Quarter: 2015Q4

REPORT INFORMATION
  Report Type: Spontaneous
  Country: GB (occurrence: GB)
  Receive Date: 20151117
  Receipt Date: 20151117
  Transmission Date: 20160304
  Serious: Yes (Hospitalization)
  Sender: FDA-Public Use
  Company Number: GB-TEVA-607208ACC

PATIENT
  Age: 91 Year
  Sex: Female

DRUGS (11)
  1. CO-AMILOFRUSE [Concomitant]
     Active Substance: AMILORIDE\FUROSEMIDE
  2. DIGOXIN. [Concomitant]
     Active Substance: DIGOXIN
  3. ADCAL-D3 [Concomitant]
     Active Substance: CALCIUM CARBONATE\CHOLECALCIFEROL
  4. SENNA [Concomitant]
     Active Substance: SENNA LEAF\SENNOSIDES\SENNOSIDES A AND B
  5. METOCLOPRAMIDE. [Suspect]
     Active Substance: METOCLOPRAMIDE
     Dosage: STARTED LONG-TERM
  6. WARFARIN [Concomitant]
     Active Substance: WARFARIN
  7. ISOSORBIDE MONONITRATE. [Concomitant]
     Active Substance: ISOSORBIDE MONONITRATE
  8. CARBOCISTEINE [Concomitant]
     Active Substance: CARBOCYSTEINE
  9. CETIRIZINE [Concomitant]
     Active Substance: CETIRIZINE HYDROCHLORIDE
  10. LETROZOLE. [Concomitant]
     Active Substance: LETROZOLE
  11. OMEPRAZOLE. [Concomitant]
     Active Substance: OMEPRAZOLE

REACTIONS (3)
  - Muscle twitching [Recovered/Resolved]
  - Tremor [Recovered/Resolved]
  - Malaise [Recovered/Resolved]
